FAERS Safety Report 15276084 (Version 1)
Quarter: 2018Q3

REPORT INFORMATION
  Report Type: Spontaneous
  Country: US (occurrence: US)
  Receive Date: 20180814
  Receipt Date: 20180814
  Transmission Date: 20181010
  Serious: Yes (Hospitalization, Other)
  Sender: FDA-Public Use
  Company Number: US-BAYER-2018-151954

PATIENT
  Age: 19 Year
  Sex: Female

DRUGS (1)
  1. SKYLA [Suspect]
     Active Substance: LEVONORGESTREL
     Indication: INTRA-UTERINE CONTRACEPTIVE DEVICE
     Dosage: 14 MCG/24HR, CONT
     Route: 015
     Dates: end: 201705

REACTIONS (3)
  - Drug ineffective [None]
  - Ectopic pregnancy with contraceptive device [Recovered/Resolved with Sequelae]
  - Ovarian cyst [Recovered/Resolved with Sequelae]

NARRATIVE: CASE EVENT DATE: 201705
